FAERS Safety Report 13524306 (Version 5)
Quarter: 2017Q3

REPORT INFORMATION
  Report Type: Spontaneous
  Country: US (occurrence: US)
  Receive Date: 20170508
  Receipt Date: 20170801
  Transmission Date: 20171127
  Serious: Yes (Hospitalization, Other)
  Sender: FDA-Public Use
  Company Number: US-009507513-1705USA002247

PATIENT
  Age: 25 Year
  Sex: Female
  Weight: 72.56 kg

DRUGS (1)
  1. NUVARING [Suspect]
     Active Substance: ETHINYL ESTRADIOL\ETONOGESTREL
     Indication: CONTRACEPTION
     Dosage: 1 DF UNK, UNK
     Route: 067
     Dates: start: 201410, end: 20150523

REACTIONS (11)
  - Smear cervix abnormal [Unknown]
  - Anaemia [Unknown]
  - Haemorrhoids [Unknown]
  - Nephrolithiasis [Not Recovered/Not Resolved]
  - Pulmonary embolism [Recovered/Resolved]
  - Oral herpes [Unknown]
  - Menorrhagia [Unknown]
  - Dyspnoea exertional [Not Recovered/Not Resolved]
  - Haematuria [Not Recovered/Not Resolved]
  - Depression [Unknown]
  - Cholelithiasis [Unknown]

NARRATIVE: CASE EVENT DATE: 2014
